FAERS Safety Report 8348766-2 (Version None)
Quarter: 2012Q2

REPORT INFORMATION
  Report Type: 
  Country: None (occurrence: None)
  Receive Date: 20120510
  Receipt Date: 20120507
  Transmission Date: 20120825
  Serious: No
  Sender: FDA-Public Use
  Company Number: US-PFIZER INC-2012072872

PATIENT
  Sex: Female
  Weight: 150 kg

DRUGS (10)
  1. ADVAIR DISKUS 100/50 [Concomitant]
     Indication: CHRONIC OBSTRUCTIVE PULMONARY DISEASE
     Dosage: UNK
  2. CYCLOBENZAPRINE [Concomitant]
     Dosage: 10 MG, UNK
     Route: 048
  3. FLUOXETINE [Concomitant]
     Dosage: 40 MG, 2X/DAY
  4. VENTOLIN HFA [Concomitant]
     Dosage: UNK
  5. LYRICA [Suspect]
     Indication: FIBROMYALGIA
     Dosage: 75 MG, 1X/DAY
     Route: 048
     Dates: start: 20120227, end: 20120305
  6. ATORVASTATIN [Concomitant]
     Dosage: 80 MG, 1X/DAY
  7. LEVOTHYROXINE [Concomitant]
     Indication: HYPOTHYROIDISM
     Dosage: UNK
  8. LISINOPRIL [Concomitant]
     Indication: HYPERTENSION
     Dosage: 20 MG, UNK
  9. TRAZODONE [Concomitant]
     Dosage: 50 MG, AS NEEDED
  10. LYRICA [Suspect]
     Dosage: 75 MG, 2X/DAY
     Route: 048
     Dates: start: 20120305

REACTIONS (4)
  - FATIGUE [None]
  - SOMNOLENCE [None]
  - PAIN [None]
  - DRUG INEFFECTIVE [None]
